FAERS Safety Report 19883365 (Version 2)
Quarter: 2021Q4

REPORT INFORMATION
  Report Type: Report from Study
  Country: US (occurrence: US)
  Receive Date: 20210926
  Receipt Date: 20211115
  Transmission Date: 20220304
  Serious: No
  Sender: FDA-Public Use
  Company Number: US-BRISTOL-MYERS SQUIBB COMPANY-BMS-2021-096124

PATIENT
  Age: 76 Year
  Sex: Male
  Weight: 106.5 kg

DRUGS (1)
  1. APIXABAN [Suspect]
     Active Substance: APIXABAN
     Indication: Thrombosis prophylaxis
     Dosage: 5 MG, HALF TABLET TWICE A DAY
     Route: 048

REACTIONS (1)
  - Intentional product use issue [Unknown]
